FAERS Safety Report 8282254-7 (Version None)
Quarter: 2012Q2

REPORT INFORMATION
  Report Type: 
  Country: None (occurrence: None)
  Receive Date: 20120410
  Receipt Date: 20120405
  Transmission Date: 20120825
  Serious: Yes (Other)
  Sender: FDA-Public Use
  Company Number: ACO_29639_2012

PATIENT
  Age: 55 Year
  Sex: Female
  Weight: 104.3 kg

DRUGS (6)
  1. WELLBUTRIN [Concomitant]
  2. LORAZEPAM [Concomitant]
  3. COPAXONE [Concomitant]
  4. AMPYRA [Suspect]
     Indication: MULTIPLE SCLEROSIS
     Dosage: 10 MG, BID, ORAL
     Route: 048
     Dates: start: 20110101, end: 20110101
  5. LETROZOLE [Concomitant]
  6. OXYBUTYNIN [Concomitant]

REACTIONS (3)
  - DIZZINESS [None]
  - FATIGUE [None]
  - NEPHROLITHIASIS [None]
